FAERS Safety Report 9866475 (Version 1)
Quarter: 2014Q1

REPORT INFORMATION
  Report Type: Spontaneous
  Country: AR (occurrence: AR)
  Receive Date: 20140204
  Receipt Date: 20140204
  Transmission Date: 20141002
  Serious: Yes (Hospitalization)
  Sender: FDA-Public Use
  Company Number: AR-AMGEN-ARGSP2014007359

PATIENT
  Age: 64 Year
  Sex: Female

DRUGS (7)
  1. ENBREL [Suspect]
     Indication: RHEUMATOID ARTHRITIS
     Dosage: 50 MG, WEEKLY
     Route: 058
     Dates: start: 20111225, end: 201312
  2. LEVOTHYROXINE [Concomitant]
     Indication: HYPOTHYROIDISM
     Dosage: UNK
  3. ENALAPRIL [Concomitant]
     Indication: HYPERTENSION
     Dosage: UNK
  4. CALCIUM [Concomitant]
     Dosage: UNK
  5. PANTOPRAZOLE [Concomitant]
     Dosage: UNK
  6. DOLO-NERVOBION [Concomitant]
     Indication: PAIN
     Dosage: 1 DF, AS NEEDED
  7. DOLO-NERVOBION [Concomitant]
     Dosage: 2 DF, DAILY

REACTIONS (3)
  - Abdominal pain [Recovered/Resolved]
  - Bile duct stone [Recovered/Resolved]
  - Arthralgia [Not Recovered/Not Resolved]
